FAERS Safety Report 5522960-8 (Version None)
Quarter: 2007Q4

REPORT INFORMATION
  Report Type: 
  Country: None (occurrence: None)
  Receive Date: 20071116
  Receipt Date: 20071106
  Transmission Date: 20080405
  Serious: Yes (Death, Hospitalization)
  Sender: FDA-Public Use
  Company Number: 2007BI017762

PATIENT
  Age: 54 Year
  Sex: Female
  Weight: 88.4514 kg

DRUGS (2)
  1. AVONEX [Suspect]
     Indication: MULTIPLE SCLEROSIS
     Dosage: 30 UG; QW; IM
     Route: 030
     Dates: start: 20070721
  2. COUMADIN [Concomitant]

REACTIONS (11)
  - DIAPHRAGMATIC HERNIA [None]
  - DYSPNOEA [None]
  - FALL [None]
  - GASTRIC DISORDER [None]
  - HERNIA [None]
  - OXYGEN SATURATION DECREASED [None]
  - PNEUMOTHORAX [None]
  - PYREXIA [None]
  - RESPIRATORY FAILURE [None]
  - VENTRICULAR TACHYCARDIA [None]
  - VOLVULUS [None]
